FAERS Safety Report 9580945 (Version 1)
Quarter: 2013Q4

REPORT INFORMATION
  Report Type: Spontaneous
  Country: US (occurrence: US)
  Receive Date: 20131002
  Receipt Date: 20131002
  Transmission Date: 20140711
  Serious: No
  Sender: FDA-Public Use
  Company Number: US-PFIZER INC-2013276698

PATIENT
  Sex: 0

DRUGS (10)
  1. ENBREL [Suspect]
     Indication: RHEUMATOID ARTHRITIS
     Dosage: UNK
  2. SULFASALAZINE [Suspect]
     Dosage: UNK
  3. CIMZIA [Suspect]
     Dosage: UNK
  4. HUMIRA [Suspect]
     Dosage: UNK
  5. REMICADE [Suspect]
     Dosage: UNK
  6. ORENCIA [Suspect]
     Dosage: UNK
  7. ACTEMRA [Suspect]
     Dosage: UNK
  8. AZATHIOPRINE [Suspect]
     Dosage: UNK
  9. ARAVA [Suspect]
     Dosage: UNK
  10. METHOTREXATE [Concomitant]
     Dosage: 20 MG, WEEKLY

REACTIONS (1)
  - Drug ineffective [Unknown]
